FAERS Safety Report 5843964-1 (Version None)
Quarter: 2008Q3

REPORT INFORMATION
  Report Type: 
  Country: None (occurrence: None)
  Receive Date: 20080731
  Receipt Date: 20080523
  Transmission Date: 20090109
  Serious: No
  Sender: FDA-Public Use
  Company Number: US200804000213

PATIENT
  Age: 76 Year
  Sex: Female
  Weight: 102 kg

DRUGS (7)
  1. BYETTA [Suspect]
     Indication: TYPE 2 DIABETES MELLITUS
     Dosage: 5 UG, 2/D, SUBCUTANEOUS
     Route: 058
     Dates: start: 20080301
  2. RELAFEN [Concomitant]
  3. ARICEPT [Concomitant]
  4. CELEXA [Concomitant]
  5. LEXAPRO [Concomitant]
  6. METHADONE HCL [Concomitant]
  7. EXENATIDE PEN, DISPOSABLE DEVICE (EXENATIDE PEN)) PEN, DISPOSABLE [Concomitant]

REACTIONS (5)
  - ARTHRALGIA [None]
  - DYSGEUSIA [None]
  - DYSURIA [None]
  - NAUSEA [None]
  - TREMOR [None]
